FAERS Safety Report 9051219 (Version 2)
Quarter: 2013Q1

REPORT INFORMATION
  Report Type: Spontaneous
  Country: FR (occurrence: FR)
  Receive Date: 20130206
  Receipt Date: 20130214
  Transmission Date: 20140127
  Serious: Yes (Hospitalization, Other)
  Sender: FDA-Public Use
  Company Number: FR-MERCK-1302FRA001419

PATIENT
  Age: 86 None
  Sex: Male

DRUGS (6)
  1. CHIBRO-PROSCAR [Suspect]
     Dosage: UNK
     Route: 048
     Dates: end: 20100318
  2. KARDEGIC [Suspect]
     Dosage: 1 DF, QD
     Route: 048
     Dates: end: 20100318
  3. DEROXAT [Suspect]
     Dosage: UNK
     Route: 048
     Dates: start: 20100210, end: 20100318
  4. SMECTA [Concomitant]
  5. HEPT-A-MYL [Concomitant]
     Indication: ORTHOSTATIC HYPOTENSION
     Dosage: UNK
     Dates: start: 20100301
  6. XYZALL [Concomitant]
     Indication: PRURITUS
     Dosage: UNK
     Dates: start: 20100315

REACTIONS (1)
  - Idiopathic thrombocytopenic purpura [Recovered/Resolved]
